FAERS Safety Report 6933856-9 (Version None)
Quarter: 2010Q3

REPORT INFORMATION
  Report Type: 
  Country: None (occurrence: None)
  Receive Date: 20100820
  Receipt Date: 20100812
  Transmission Date: 20110219
  Serious: No
  Sender: FDA-Public Use
  Company Number: US-US-EMD SERONO, INC.-7014251

PATIENT
  Sex: Female
  Weight: 86 kg

DRUGS (3)
  1. REBIF [Suspect]
     Indication: MULTIPLE SCLEROSIS
     Route: 058
     Dates: start: 20090828
  2. SINGULAIR [Concomitant]
     Indication: ASTHMA
  3. RHINOCORT [Concomitant]
     Indication: ASTHMA

REACTIONS (4)
  - CHOLECYSTECTOMY [None]
  - HEADACHE [None]
  - PANCREATITIS [None]
  - STRESS [None]
